FAERS Safety Report 16290910 (Version 5)
Quarter: 2019Q2

REPORT INFORMATION
  Report Type: Report from Study
  Country: CO (occurrence: CO)
  Receive Date: 20190509
  Receipt Date: 20190624
  Transmission Date: 20190711
  Serious: Yes (Other)
  Sender: FDA-Public Use
  Company Number: CO-ACTELION-A-CH2018-182276

PATIENT
  Age: 30 Year
  Sex: Female
  Weight: 42 kg

DRUGS (2)
  1. ZAVESCA [Suspect]
     Active Substance: MIGLUSTAT
     Dosage: 200 MG, TID
     Route: 048
     Dates: start: 20180129, end: 20190204
  2. ZAVESCA [Suspect]
     Active Substance: MIGLUSTAT
     Indication: NIEMANN-PICK DISEASE
     Dosage: 200 MG, TID
     Route: 048
     Dates: start: 20190224

REACTIONS (19)
  - Weight increased [Unknown]
  - Eye swelling [Recovered/Resolved]
  - Gait disturbance [Unknown]
  - Scratch [Not Recovered/Not Resolved]
  - Aggression [Not Recovered/Not Resolved]
  - Foreign body in ear [Not Recovered/Not Resolved]
  - Ear operation [Not Recovered/Not Resolved]
  - Weight decreased [Not Recovered/Not Resolved]
  - Alopecia [Not Recovered/Not Resolved]
  - Syncope [Recovered/Resolved]
  - Mucosal discolouration [Not Recovered/Not Resolved]
  - Pallor [Recovered/Resolved]
  - Infrequent bowel movements [Not Recovered/Not Resolved]
  - Diarrhoea [Not Recovered/Not Resolved]
  - Malaise [Not Recovered/Not Resolved]
  - Fatigue [Not Recovered/Not Resolved]
  - Pain [Not Recovered/Not Resolved]
  - Dysphemia [Unknown]
  - General physical health deterioration [Not Recovered/Not Resolved]

NARRATIVE: CASE EVENT DATE: 2018
